FAERS Safety Report 16866439 (Version 1)
Quarter: 2019Q3

REPORT INFORMATION
  Report Type: Spontaneous
  Country: JP (occurrence: JP)
  Receive Date: 20190930
  Receipt Date: 20190930
  Transmission Date: 20191005
  Serious: Yes (Other)
  Sender: FDA-Public Use
  Company Number: JP-GLAXOSMITHKLINE-JP2019JPN174665

PATIENT
  Sex: Female

DRUGS (3)
  1. REQUIP [Suspect]
     Active Substance: ROPINIROLE HYDROCHLORIDE
     Dosage: 4 MG, BID(MORNING, EVENING)
     Route: 048
     Dates: start: 20190902
  2. REQUIP [Suspect]
     Active Substance: ROPINIROLE HYDROCHLORIDE
     Dosage: 4 MG, QD(MORNING)
     Route: 048
     Dates: start: 20190819
  3. NEUPRO [Concomitant]
     Active Substance: ROTIGOTINE
     Dosage: UNK

REACTIONS (4)
  - Pyrexia [Unknown]
  - Therapeutic product effect incomplete [Unknown]
  - Arrhythmia [Unknown]
  - Product use issue [Unknown]

NARRATIVE: CASE EVENT DATE: 2019
